FAERS Safety Report 13667386 (Version 3)
Quarter: 2019Q2

REPORT INFORMATION
  Report Type: Spontaneous
  Country: US (occurrence: US)
  Receive Date: 20170620
  Receipt Date: 20190430
  Transmission Date: 20190711
  Serious: Yes (Hospitalization, Congenital Anomaly, Other)
  Sender: FDA-Public Use
  Company Number: US-BIOGEN-2017BI00418354

PATIENT
  Age: 0 Day
  Sex: Male

DRUGS (3)
  1. TYSABRI [Suspect]
     Active Substance: NATALIZUMAB
     Indication: MATERNAL EXPOSURE TIMING UNSPECIFIED
     Dosage: INFUSED OVER 1 HOUR
     Route: 064
     Dates: start: 20121008, end: 20160815
  2. TYSABRI [Suspect]
     Active Substance: NATALIZUMAB
     Dosage: INFUSED OVER 1 HOUR
     Route: 064
     Dates: start: 20170713
  3. TYSABRI [Suspect]
     Active Substance: NATALIZUMAB
     Dosage: INFUSED OVER 1 HOUR
     Route: 064
     Dates: start: 20121008, end: 20161122

REACTIONS (5)
  - Cardiac septal defect [Not Recovered/Not Resolved]
  - Foetal exposure timing unspecified [Recovered/Resolved]
  - Trisomy 21 [Not Recovered/Not Resolved]
  - Umbilical cord abnormality [Recovered/Resolved]
  - Right aortic arch [Not Recovered/Not Resolved]

NARRATIVE: CASE EVENT DATE: 20170324
